FAERS Safety Report 7486443-0 (Version None)
Quarter: 2011Q2

REPORT INFORMATION
  Report Type: 
  Country: None (occurrence: None)
  Receive Date: 20110517
  Receipt Date: 20110511
  Transmission Date: 20111010
  Serious: Yes (Hospitalization)
  Sender: FDA-Public Use
  Company Number: FR-PFIZER INC-2005087506

PATIENT
  Age: 67 Year
  Sex: Female

DRUGS (9)
  1. HEXAQUINE [Suspect]
     Route: 048
  2. DAFLON [Concomitant]
     Route: 065
     Dates: start: 19950101
  3. ACETAMINOPHEN [Suspect]
     Route: 048
     Dates: end: 20050417
  4. OXAZEPAM [Suspect]
     Route: 048
     Dates: end: 20050417
  5. ZOLOFT [Suspect]
     Route: 048
     Dates: end: 20050417
  6. CARTROL [Concomitant]
     Route: 065
     Dates: start: 20040101
  7. PIROXICAM [Suspect]
     Route: 048
     Dates: start: 20050115, end: 20050417
  8. ENALAPRIL MALEATE [Suspect]
     Route: 048
     Dates: end: 20050417
  9. LEVOTHYROXINE SODIUM [Concomitant]
     Route: 065
     Dates: start: 19980101

REACTIONS (1)
  - HEPATITIS [None]
